FAERS Safety Report 15196270 (Version 4)
Quarter: 2018Q3

REPORT INFORMATION
  Report Type: Spontaneous
  Country: US (occurrence: US)
  Receive Date: 20180725
  Receipt Date: 20180924
  Transmission Date: 20181010
  Serious: Yes (Death, Hospitalization, Other)
  Sender: FDA-Public Use
  Company Number: US-PFIZER INC-2018290141

PATIENT
  Age: 35 Year
  Sex: Male

DRUGS (2)
  1. MILRINONE [Concomitant]
     Active Substance: MILRINONE
     Indication: BLOOD PRESSURE ABNORMAL
     Dosage: UNK
  2. AMIODARONE HCL [Suspect]
     Active Substance: AMIODARONE HYDROCHLORIDE
     Indication: VENTRICULAR TACHYCARDIA
     Dosage: 200 MG, DAILY

REACTIONS (2)
  - Thyroiditis [Fatal]
  - Thyrotoxic crisis [Fatal]
